FAERS Safety Report 4391512-8 (Version None)
Quarter: 2004Q3

REPORT INFORMATION
  Report Type: 
  Country: None (occurrence: None)
  Receive Date: 20040707
  Receipt Date: 20040707
  Transmission Date: 20050211
  Serious: No
  Sender: FDA-Public Use
  Company Number: None

PATIENT

DRUGS (1)
  1. CRESTOR [Suspect]
     Dates: end: 20041103

REACTIONS (2)
  - CARDIOVASCULAR DISORDER [None]
  - DEAFNESS [None]
